FAERS Safety Report 10363535 (Version 1)
Quarter: 2014Q1

REPORT INFORMATION
  Report Type: Spontaneous
  Country: US (occurrence: None)
  Receive Date: 20140306
  Receipt Date: 20140306
  Transmission Date: 20141002
  Serious: Yes (Hospitalization, Other)
  Sender: FDA-Public Use
  Company Number: 163-21880-13061624

PATIENT
  Age: 74 Year
  Sex: Male
  Weight: 84.8 kg

DRUGS (13)
  1. REVLIMID [Suspect]
     Indication: PLASMA CELL MYELOMA
     Dosage: 5 MG, 3 IN 1 WK, PO
     Route: 048
     Dates: start: 201305, end: 20130705
  2. PANTOPRAZOLE SODIUM DR(PANTOPRAZOLE)(40 MILLIGRAM,  TABLETS) [Concomitant]
  3. DEXAMETHASONE(DEXAMETHASONE)(4 MILLIGRAM, TABLETS) [Concomitant]
  4. SIMVASTATIN(SIMVASTATIN)(10 MILLIGRAM, TABLETS) [Concomitant]
  5. FOLIC ACID(FOLIC ACID)(1 MILLIGRAM, TABLETS) [Concomitant]
  6. DILTIAZEM ER(DILTIAZEM HYDROCHLORIDE)(180 MILLIGRAM, CAPSULES) [Concomitant]
  7. AMMONIUM LACTATE(AMMONIUM LACTATE) (12 PERCENT, CREAM) [Concomitant]
  8. RENVELA(SEVELAMER CARBONATE)(800 MILLIGRAM, TABLETS) [Concomitant]
  9. RENA-VITE(NEPHROVITE) (TABLETS) [Concomitant]
  10. VELCADE(BORTEZOMIB)(3.5 MILLIGRAM, UNKNOWN) [Concomitant]
  11. DECADRON(DEXAMETHASONE) (UNKNOWN) [Concomitant]
  12. ASPIRIN(ACETYLSALICYLIC ACID)(UNKNOWN) [Concomitant]
  13. CALCIUM(CALCIUM)(UNKNOWN) [Concomitant]

REACTIONS (2)
  - Blood viscosity increased [None]
  - Rash pruritic [None]
